FAERS Safety Report 14820690 (Version 1)
Quarter: 2018Q2

REPORT INFORMATION
  Report Type: Spontaneous
  Country: US (occurrence: US)
  Receive Date: 20180427
  Receipt Date: 20180427
  Transmission Date: 20180711
  Serious: No
  Sender: FDA-Public Use
  Company Number: US-LNK INTERNATIONAL, INC.-2046735

PATIENT
  Sex: Male

DRUGS (4)
  1. ANTI-DIARRHEAL [Suspect]
     Active Substance: LOPERAMIDE HYDROCHLORIDE
     Indication: DIARRHOEA
  2. PAROXETINE. [Concomitant]
     Active Substance: PAROXETINE
  3. OFEV [Concomitant]
     Active Substance: NINTEDANIB
  4. OMEPRAZOLE. [Concomitant]
     Active Substance: OMEPRAZOLE

REACTIONS (1)
  - Drug ineffective [None]
